FAERS Safety Report 8426161-5 (Version None)
Quarter: 2012Q2

REPORT INFORMATION
  Report Type: 
  Country: None (occurrence: None)
  Receive Date: 20120611
  Receipt Date: 20110801
  Transmission Date: 20120825
  Serious: No
  Sender: FDA-Public Use
  Company Number: US-MYLANLABS-2011S1015135

PATIENT
  Age: 42 Year
  Sex: Male
  Weight: 137.89 kg

DRUGS (9)
  1. DICLOFENAC SODIUM [Concomitant]
  2. ANDROGEL [Concomitant]
  3. CHANTIX [Concomitant]
  4. KLONOPIN [Concomitant]
  5. DEPAKOTE [Concomitant]
  6. GUANFACINE [Concomitant]
  7. DOXEPIN HYDROCHLORIDE [Suspect]
     Indication: INSOMNIA
     Route: 048
     Dates: start: 20110619, end: 20110701
  8. ULTRAM [Concomitant]
  9. ATENOLOL [Concomitant]

REACTIONS (3)
  - BLOOD GLUCOSE INCREASED [None]
  - LETHARGY [None]
  - MIGRAINE [None]
